FAERS Safety Report 13290830 (Version 1)
Quarter: 2017Q1

REPORT INFORMATION
  Report Type: Spontaneous
  Country: GB (occurrence: GB)
  Receive Date: 20170302
  Receipt Date: 20170302
  Transmission Date: 20170428
  Serious: Yes (Hospitalization, Other)
  Sender: FDA-Public Use
  Company Number: GB-BRISTOL-MYERS SQUIBB COMPANY-BMS-2017-014230

PATIENT
  Age: 86 Year
  Sex: Female

DRUGS (1)
  1. KENALOG [Suspect]
     Active Substance: TRIAMCINOLONE ACETONIDE
     Indication: ANKYLOSING SPONDYLITIS
     Dosage: 120 MG, UNK
     Route: 065
     Dates: start: 20160401

REACTIONS (8)
  - Dehydration [Unknown]
  - Fall [Unknown]
  - Pneumonia bacterial [Unknown]
  - Spinal pain [Unknown]
  - Traumatic renal injury [Unknown]
  - Sepsis [Unknown]
  - Weight decreased [Unknown]
  - Prescribed overdose [Unknown]

NARRATIVE: CASE EVENT DATE: 20160405
